FAERS Safety Report 15296355 (Version 3)
Quarter: 2019Q3

REPORT INFORMATION
  Report Type: Spontaneous
  Country: US (occurrence: US)
  Receive Date: 20180820
  Receipt Date: 20190805
  Transmission Date: 20191004
  Serious: Yes (Other)
  Sender: FDA-Public Use
  Company Number: US-PFIZER INC-2018331408

PATIENT
  Age: 18 Year
  Sex: Male

DRUGS (11)
  1. VINCRISTINE SULFATE. [Suspect]
     Active Substance: VINCRISTINE SULFATE
     Indication: BURKITT^S LYMPHOMA
     Dosage: UNK, CYCLIC (COP THERAPY)
  2. CYCLOPHOSPHAMIDE. [Suspect]
     Active Substance: CYCLOPHOSPHAMIDE
     Indication: BURKITT^S LYMPHOMA
     Dosage: UNK, CYCLIC (COP THERAPY)
  3. VINCRISTINE SULFATE. [Suspect]
     Active Substance: VINCRISTINE SULFATE
     Dosage: UNK, CYCLIC (DOSE-ADJUSTED EPOCH-R, 6 TOTAL CYCLES)
  4. ETOPOSIDE. [Suspect]
     Active Substance: ETOPOSIDE
     Indication: BURKITT^S LYMPHOMA
     Dosage: UNK, CYCLIC (DOSE-ADJUSTED EPOCH-R, 6 TOTAL CYCLES)
  5. CYCLOPHOSPHAMIDE. [Suspect]
     Active Substance: CYCLOPHOSPHAMIDE
     Dosage: UNK, CYCLIC (DOSE-ADJUSTED EPOCH-R, 6 TOTAL CYCLES)
  6. FILGRASTIM [Concomitant]
     Active Substance: FILGRASTIM
     Indication: BURKITT^S LYMPHOMA
     Dosage: UNK, CYCLIC
  7. PREDNISONE. [Suspect]
     Active Substance: PREDNISONE
     Indication: BURKITT^S LYMPHOMA
     Dosage: UNK, CYCLIC (DOSE-ADJUSTED EPOCH-R, 6 TOTAL CYCLES)
  8. DOXORUBICIN HCL [Suspect]
     Active Substance: DOXORUBICIN HYDROCHLORIDE
     Indication: BURKITT^S LYMPHOMA
     Dosage: UNK, CYCLIC (DOSE-ADJUSTED EPOCH-R, 6 TOTAL CYCLES)
  9. RITUXIMAB. [Suspect]
     Active Substance: RITUXIMAB
     Indication: BURKITT^S LYMPHOMA
     Dosage: UNK (OF COP WITH RITUXIMAB)
  10. RITUXIMAB. [Suspect]
     Active Substance: RITUXIMAB
     Dosage: UNK, CYCLIC (DOSE-ADJUSTED EPOCH-R, 6 TOTAL CYCLES)
  11. RASBURICASE [Concomitant]
     Active Substance: RASBURICASE
     Indication: HYPERURICAEMIA
     Dosage: UNK

REACTIONS (3)
  - Pancytopenia [Unknown]
  - Neuralgia [Unknown]
  - Hypertension [Unknown]
